FAERS Safety Report 9416081 (Version 1)
Quarter: 2013Q3

REPORT INFORMATION
  Report Type: Spontaneous
  Country: US (occurrence: None)
  Receive Date: 20130717
  Receipt Date: 20130717
  Transmission Date: 20140515
  Serious: No
  Sender: FDA-Public Use
  Company Number: 2013AP006630

PATIENT
  Age: 89 Year
  Sex: Female

DRUGS (8)
  1. FOSINOPRIL [Suspect]
     Indication: HYPERTENSION
     Route: 048
     Dates: start: 20060726
  2. AMLODIPINE BESYLATE TABLETS [Suspect]
     Indication: HYPERTENSION
     Route: 048
     Dates: start: 20060830
  3. DOXAZOSIN [Suspect]
     Indication: HYPERTENSION
     Route: 048
     Dates: start: 20080616
  4. METOPROLOL SUCCINATE [Suspect]
     Indication: HYPERTENSION
     Route: 048
     Dates: start: 20080227
  5. SPIRONOLACTONE [Suspect]
     Indication: HYPERTENSION
     Route: 048
     Dates: start: 20081015
  6. BENICAR HCT [Suspect]
     Indication: HYPERTENSION
     Route: 048
     Dates: start: 20090204
  7. ATORVASTATIN [Concomitant]
  8. GLIPIZIDE [Concomitant]

REACTIONS (3)
  - Orthostatic hypotension [None]
  - Hyperkalaemia [None]
  - Renal failure [None]
